FAERS Safety Report 12511243 (Version 1)
Quarter: 2016Q2

REPORT INFORMATION
  Report Type: Report from Study
  Country: CA (occurrence: CA)
  Receive Date: 20160629
  Receipt Date: 20160629
  Transmission Date: 20160815
  Serious: Yes (Hospitalization, Disabling)
  Sender: FDA-Public Use
  Company Number: CA-ABBVIE-16P-028-1662318-00

PATIENT
  Sex: Male
  Weight: 63.56 kg

DRUGS (3)
  1. METOPROLOL. [Concomitant]
     Active Substance: METOPROLOL
     Indication: PRODUCT USED FOR UNKNOWN INDICATION
     Route: 065
  2. LUPRON DEPOT [Suspect]
     Active Substance: LEUPROLIDE ACETATE
     Indication: PROSTATE CANCER
     Route: 030
  3. RAMIPRIL. [Concomitant]
     Active Substance: RAMIPRIL
     Indication: PRODUCT USED FOR UNKNOWN INDICATION
     Route: 065

REACTIONS (12)
  - Blindness [Not Recovered/Not Resolved]
  - Corneal deposits [Unknown]
  - Pain [Unknown]
  - Ocular hyperaemia [Unknown]
  - Amaurosis fugax [Unknown]
  - Ocular discomfort [Unknown]
  - Pupil fixed [Unknown]
  - Eye haemorrhage [Unknown]
  - Angle closure glaucoma [Unknown]
  - Headache [Unknown]
  - Nausea [Unknown]
  - Pupillary reflex impaired [Unknown]

NARRATIVE: CASE EVENT DATE: 20160309
